FAERS Safety Report 19410461 (Version 1)
Quarter: 2021Q2

REPORT INFORMATION
  Report Type: Spontaneous
  Country: US (occurrence: US)
  Receive Date: 20210613
  Receipt Date: 20210613
  Transmission Date: 20210717
  Serious: Yes (Other)
  Sender: FDA-Public Use
  Company Number: None

PATIENT
  Sex: Female

DRUGS (2)
  1. MONTELUKAST SOF [Suspect]
     Active Substance: MONTELUKAST SODIUM
     Indication: ASTHMA
     Dosage: ?          QUANTITY:1 CAPSULE(S);?
     Route: 048
     Dates: start: 20210504, end: 20210612
  2. MONTELUKAST SOF [Suspect]
     Active Substance: MONTELUKAST SODIUM
     Indication: MULTIPLE ALLERGIES
     Dosage: ?          QUANTITY:1 CAPSULE(S);?
     Route: 048
     Dates: start: 20210504, end: 20210612

REACTIONS (12)
  - Urticaria [None]
  - Decreased appetite [None]
  - Loss of personal independence in daily activities [None]
  - Dyspnoea [None]
  - Nausea [None]
  - Throat tightness [None]
  - Abdominal pain upper [None]
  - Headache [None]
  - Mood altered [None]
  - Depression [None]
  - Oropharyngeal pain [None]
  - Anxiety [None]

NARRATIVE: CASE EVENT DATE: 20210610
